FAERS Safety Report 20014065 (Version 2)
Quarter: 2022Q1

REPORT INFORMATION
  Report Type: Report from Study
  Country: US (occurrence: US)
  Receive Date: 20211029
  Receipt Date: 20220116
  Transmission Date: 20220423
  Serious: Yes (Hospitalization)
  Sender: FDA-Public Use
  Company Number: US-REGENERON PHARMACEUTICALS, INC.-2021-96922

PATIENT
  Age: 81 Year
  Sex: Female

DRUGS (12)
  1. CASIRIVIMAB\IMDEVIMAB [Suspect]
     Active Substance: CASIRIVIMAB\IMDEVIMAB
     Indication: COVID-19
     Dosage: CASIRIVIMAB-IMDEVIMAB, 1200 MG 600-600 MG, SINGLE
     Route: 042
     Dates: start: 20211015, end: 20211015
  2. GLIPIZIDE XL [Concomitant]
     Active Substance: GLIPIZIDE
     Indication: Product used for unknown indication
     Dosage: 5 MG 24 HR TABLET
     Route: 048
  3. HYDROXYZINE [Concomitant]
     Active Substance: HYDROXYZINE HYDROCHLORIDE
     Indication: Product used for unknown indication
  4. VISTARIL                           /00058402/ [Concomitant]
     Indication: Product used for unknown indication
     Dosage: 25 MG CAPSULE
     Route: 048
  5. CYMBALTA [Concomitant]
     Active Substance: DULOXETINE HYDROCHLORIDE
     Indication: Product used for unknown indication
     Dosage: 30 MG CAPSULE
     Route: 048
  6. XARELTO [Concomitant]
     Active Substance: RIVAROXABAN
     Indication: Product used for unknown indication
     Dosage: 20 MG TABLET
     Route: 048
  7. SENNA                              /00142201/ [Concomitant]
     Indication: Product used for unknown indication
     Dosage: 8.6 MG TAB
     Route: 048
  8. TOPROL XL [Concomitant]
     Active Substance: METOPROLOL SUCCINATE
     Indication: Product used for unknown indication
     Dosage: 100 MG, UNK
     Route: 048
  9. NYSTOP [Concomitant]
     Active Substance: NYSTATIN
     Indication: Product used for unknown indication
     Route: 065
  10. TYLENOL                            /00020001/ [Concomitant]
     Indication: Product used for unknown indication
     Dosage: 500 MG TABLET
     Route: 048
  11. ANTIVERT                           /00007101/ [Concomitant]
     Indication: Product used for unknown indication
     Dosage: 25 MG TAB
     Route: 048
  12. VITAMIN D3 [Concomitant]
     Active Substance: CHOLECALCIFEROL
     Indication: Product used for unknown indication
     Dosage: 2,000 UNIT TABLET
     Route: 048

REACTIONS (1)
  - Blood pressure increased [Unknown]

NARRATIVE: CASE EVENT DATE: 20211015
